FAERS Safety Report 6742552-2 (Version None)
Quarter: 2010Q2

REPORT INFORMATION
  Report Type: 
  Country: None (occurrence: None)
  Receive Date: 20100524
  Receipt Date: 20100419
  Transmission Date: 20101027
  Serious: No
  Sender: FDA-Public Use
  Company Number: ACO_00723_2010

PATIENT
  Age: 48 Year
  Sex: Male
  Weight: 61.2356 kg

DRUGS (6)
  1. AMPYRA [Suspect]
     Indication: MULTIPLE SCLEROSIS
     Dosage: (10 MG BID ORAL)
     Route: 048
     Dates: start: 20100410, end: 20100419
  2. FLOMAX /01280302/ [Concomitant]
  3. RITALIN [Concomitant]
  4. AMANTADINE HCL [Concomitant]
  5. COPAXONE /03175301/ [Concomitant]
  6. SOLU-MEDROL [Concomitant]

REACTIONS (2)
  - MUSCULAR WEAKNESS [None]
  - TREMOR [None]
